FAERS Safety Report 23311885 (Version 1)
Quarter: 2023Q4

REPORT INFORMATION
  Report Type: Spontaneous
  Country: US (occurrence: US)
  Receive Date: 20231219
  Receipt Date: 20231219
  Transmission Date: 20240110
  Serious: No
  Sender: FDA-Public Use
  Company Number: ENDG23-06053

PATIENT
  Sex: Female

DRUGS (1)
  1. PITOCIN [Suspect]
     Active Substance: OXYTOCIN
     Indication: Breast feeding
     Dosage: UNK UNKNOWN, UNKNOWN
     Route: 045

REACTIONS (2)
  - Off label use [Unknown]
  - Maternal exposure during breast feeding [Unknown]
